FAERS Safety Report 9547176 (Version 1)
Quarter: 2013Q3

REPORT INFORMATION
  Report Type: Spontaneous
  Country: FR (occurrence: FR)
  Receive Date: 20130924
  Receipt Date: 20130924
  Transmission Date: 20140515
  Serious: Yes (Hospitalization, Other)
  Sender: FDA-Public Use
  Company Number: FR-JNJFOC-20130912002

PATIENT
  Age: 78 Year
  Sex: Female

DRUGS (15)
  1. XARELTO [Suspect]
     Indication: CEREBROVASCULAR ACCIDENT PROPHYLAXIS
     Route: 048
     Dates: start: 20130314
  2. XARELTO [Suspect]
     Indication: ATRIAL FIBRILLATION
     Route: 048
     Dates: start: 20130314
  3. COLCHICINE [Suspect]
     Indication: PRODUCT USED FOR UNKNOWN INDICATION
     Route: 048
     Dates: start: 20130325, end: 20130405
  4. TRIATEC [Concomitant]
     Route: 048
  5. ELISOR [Concomitant]
     Route: 048
  6. LEVOTHYROX [Concomitant]
     Route: 048
  7. LASILIX [Concomitant]
     Route: 048
  8. RUBOZINC [Concomitant]
     Route: 048
     Dates: start: 20130303, end: 20130319
  9. SPECIAFOLDINE [Concomitant]
     Route: 048
     Dates: start: 20130320, end: 20130403
  10. TARDYFERON [Concomitant]
     Route: 048
     Dates: start: 20130315, end: 20130403
  11. SILVER NITRATE [Concomitant]
     Route: 003
     Dates: start: 20130320
  12. BETNEVAL [Concomitant]
     Route: 003
     Dates: start: 20130327
  13. SELOKEN (METOPROLOL TARTRATE) [Concomitant]
     Route: 048
  14. ATARAX [Concomitant]
     Route: 048
     Dates: start: 20130228
  15. ZYLORIC [Concomitant]
     Route: 048

REACTIONS (6)
  - Lymphadenopathy mediastinal [Recovering/Resolving]
  - Lung infiltration [Recovering/Resolving]
  - Rash pustular [Recovered/Resolved]
  - Neutrophilia [Recovered/Resolved]
  - Eosinophilia [Recovered/Resolved]
  - Hyperthermia [Recovered/Resolved]
